FAERS Safety Report 7817356-X (Version None)
Quarter: 2011Q4

REPORT INFORMATION
  Report Type: 
  Country: None (occurrence: None)
  Receive Date: 20111017
  Receipt Date: 20111004
  Transmission Date: 20120403
  Serious: Yes (Hospitalization, Other)
  Sender: FDA-Public Use
  Company Number: CA-ELI_LILLY_AND_COMPANY-CA201009000876

PATIENT
  Sex: Female
  Weight: 54.875 kg

DRUGS (10)
  1. FORTEO [Suspect]
     Indication: OSTEOPOROSIS
     Dosage: 20 UG, DAILY (1/D)
     Route: 058
     Dates: start: 20081117
  2. LEVOTHYROXINE SODIUM [Concomitant]
  3. FORTEO [Suspect]
     Dosage: 20 UG, QD
     Route: 058
     Dates: start: 20090301, end: 20100908
  4. VITAMIN D [Concomitant]
  5. CALCIUM CARBONATE [Concomitant]
  6. ENALAPRIL MALEATE [Concomitant]
  7. VITAMIN B-12 [Concomitant]
  8. HYDROMORPHONE HCL [Concomitant]
  9. FORTEO [Suspect]
     Dosage: 20 UG, QD
     Route: 058
     Dates: start: 20100101
  10. SENOKOT [Concomitant]

REACTIONS (7)
  - ATRIAL FIBRILLATION [None]
  - TRICUSPID VALVE INCOMPETENCE [None]
  - TROPONIN INCREASED [None]
  - AORTIC VALVE INCOMPETENCE [None]
  - CONSTIPATION [None]
  - MITRAL VALVE INCOMPETENCE [None]
  - PULMONARY VALVE INCOMPETENCE [None]
